FAERS Safety Report 5495192-X (Version None)
Quarter: 2007Q4

REPORT INFORMATION
  Report Type: 
  Country: None (occurrence: None)
  Receive Date: 20071024
  Receipt Date: 20070815
  Transmission Date: 20080405
  Serious: No
  Sender: FDA-Public Use
  Company Number: US-AMGEN-US238945

PATIENT
  Age: 53 Year
  Sex: Male
  Weight: 97.2 kg

DRUGS (1)
  1. VECTIBIX [Suspect]
     Indication: COLORECTAL CANCER
     Dates: start: 20070807, end: 20070807

REACTIONS (2)
  - PRURITUS [None]
  - RASH [None]
